FAERS Safety Report 8800141 (Version 3)
Quarter: 2015Q1

REPORT INFORMATION
  Report Type: Report from Study
  Country: US (occurrence: US)
  Receive Date: 20120921
  Receipt Date: 20150319
  Transmission Date: 20150721
  Serious: Yes (Death, Other)
  Sender: FDA-Public Use
  Company Number: US-ROCHE-1124551

PATIENT
  Age: 43 Year
  Sex: Female

DRUGS (6)
  1. LORTAB (UNITED STATES) [Concomitant]
  2. TAXOTERE [Concomitant]
     Active Substance: DOCETAXEL
  3. FLEXERIL [Concomitant]
     Active Substance: CYCLOBENZAPRINE HYDROCHLORIDE
  4. ATIVAN [Concomitant]
     Active Substance: LORAZEPAM
     Route: 065
  5. DILAUDID [Concomitant]
     Active Substance: HYDROMORPHONE HYDROCHLORIDE
  6. AVASTIN [Suspect]
     Active Substance: BEVACIZUMAB
     Indication: BREAST CANCER FEMALE
     Route: 042
     Dates: start: 20070827

REACTIONS (22)
  - Weight decreased [Unknown]
  - Pleural effusion [Unknown]
  - Discomfort [Unknown]
  - Disease progression [Unknown]
  - Ill-defined disorder [Unknown]
  - Tachypnoea [Unknown]
  - Decreased appetite [Unknown]
  - Unevaluable event [Unknown]
  - Death [Fatal]
  - Sneezing [Unknown]
  - Stridor [Unknown]
  - Pain [Unknown]
  - Anxiety [Unknown]
  - Musculoskeletal chest pain [Unknown]
  - Metastases to lung [Unknown]
  - Tachycardia [Unknown]
  - Asthenia [Unknown]
  - Throat irritation [Unknown]
  - Insomnia [Unknown]
  - Muscle spasms [Unknown]
  - Cachexia [Unknown]
  - Dyspepsia [Unknown]

NARRATIVE: CASE EVENT DATE: 20080904
